FAERS Safety Report 9482034 (Version 1)
Quarter: 2013Q3

REPORT INFORMATION
  Report Type: Spontaneous
  Country: US (occurrence: US)
  Receive Date: 20130828
  Receipt Date: 20130828
  Transmission Date: 20140515
  Serious: No
  Sender: FDA-Public Use
  Company Number: US-FOUGERA-2013FO000123

PATIENT
  Sex: Female

DRUGS (2)
  1. NITRO-BID [Suspect]
     Indication: PROMOTION OF PERIPHERAL CIRCULATION
     Route: 061
  2. LOSARTAN [Concomitant]
     Indication: BLOOD PRESSURE INCREASED
     Route: 048

REACTIONS (3)
  - Off label use [Not Recovered/Not Resolved]
  - Headache [Recovered/Resolved]
  - Drug administration error [Recovered/Resolved]
